FAERS Safety Report 20448674 (Version 2)
Quarter: 2022Q1

REPORT INFORMATION
  Report Type: Spontaneous
  Country: ES (occurrence: ES)
  Receive Date: 20220209
  Receipt Date: 20220217
  Transmission Date: 20220423
  Serious: Yes (Hospitalization, Other)
  Sender: FDA-Public Use
  Company Number: ES-Accord-253214

PATIENT
  Age: 65 Year
  Sex: Male

DRUGS (11)
  1. FUROSEMIDE [Suspect]
     Active Substance: FUROSEMIDE
     Indication: Hypertension
     Dates: start: 202009
  2. TELMISARTAN [Concomitant]
     Active Substance: TELMISARTAN
  3. LERCANIDIPINE [Concomitant]
     Active Substance: LERCANIDIPINE
  4. ATORVASTATIN [Concomitant]
     Active Substance: ATORVASTATIN
  5. OMEPRAZOLE [Concomitant]
     Active Substance: OMEPRAZOLE
  6. TAMSULOSIN [Concomitant]
     Active Substance: TAMSULOSIN
  7. CALCITRIOL [Concomitant]
     Active Substance: CALCITRIOL
     Dates: start: 201603
  8. PREDNISONE [Concomitant]
     Active Substance: PREDNISONE
     Dates: start: 201712
  9. TACROLIMUS [Concomitant]
     Active Substance: TACROLIMUS
     Dosage: ONCE A DAY
     Dates: start: 201712
  10. MYCOPHENOLIC ACID [Concomitant]
     Active Substance: MYCOPHENOLIC ACID
     Dosage: TWO TIMES A DAY
     Dates: start: 201712
  11. ALLOPURINOL [Concomitant]
     Active Substance: ALLOPURINOL
     Dates: start: 201712

REACTIONS (1)
  - Narrow anterior chamber angle [Recovering/Resolving]

NARRATIVE: CASE EVENT DATE: 20201201
